FAERS Safety Report 15349283 (Version 1)
Quarter: 2018Q3

REPORT INFORMATION
  Report Type: Spontaneous
  Country: FR (occurrence: FR)
  Receive Date: 20180904
  Receipt Date: 20180904
  Transmission Date: 20181010
  Serious: Yes (Other)
  Sender: FDA-Public Use
  Company Number: FR-JNJFOC-20180843798

PATIENT
  Age: 31 Year
  Sex: Female
  Weight: 56 kg

DRUGS (2)
  1. IMUREL [Concomitant]
     Active Substance: AZATHIOPRINE SODIUM
     Indication: CROHN^S DISEASE
     Route: 048
     Dates: start: 2012
  2. INFLIXIMAB, RECOMBINANT [Suspect]
     Active Substance: INFLIXIMAB
     Indication: CROHN^S DISEASE
     Route: 042
     Dates: start: 20151207, end: 20161126

REACTIONS (2)
  - Paradoxical drug reaction [Recovered/Resolved]
  - Arthropathy [Recovered/Resolved]

NARRATIVE: CASE EVENT DATE: 20161012
